FAERS Safety Report 22034880 (Version 2)
Quarter: 2023Q1

REPORT INFORMATION
  Report Type: Spontaneous
  Country: RU (occurrence: None)
  Receive Date: 20230224
  Receipt Date: 20230317
  Transmission Date: 20230417
  Serious: Yes (Other)
  Sender: FDA-Public Use
  Company Number: 2023A042636

PATIENT
  Age: 33 Year
  Sex: Female

DRUGS (4)
  1. SYMBICORT [Suspect]
     Active Substance: BUDESONIDE\FORMOTEROL FUMARATE DIHYDRATE
     Indication: Asthma
     Dosage: 160/4.5 MCG, 2 TIMES A DAY
     Route: 055
  2. URSODIOL [Concomitant]
     Active Substance: URSODIOL
  3. POTASSIUM IODIDE [Concomitant]
     Active Substance: POTASSIUM IODIDE
  4. COMPLEX VITAMIN PREPARATIONS [Concomitant]

REACTIONS (11)
  - Exposure during pregnancy [Unknown]
  - Alanine aminotransferase increased [Unknown]
  - Aspartate aminotransferase increased [Unknown]
  - Liver disorder [Unknown]
  - Pancreatic disorder [Unknown]
  - Eosinophil count decreased [Unknown]
  - Red blood cell sedimentation rate [Unknown]
  - Gestational diabetes [Unknown]
  - Blood alkaline phosphatase increased [Unknown]
  - Neutrophil count increased [Unknown]
  - Blood bilirubin increased [Unknown]
